FAERS Safety Report 6371662-7 (Version None)
Quarter: 2009Q3

REPORT INFORMATION
  Report Type: 
  Country: None (occurrence: None)
  Receive Date: 20090923
  Receipt Date: 20080403
  Transmission Date: 20100115
  Serious: No
  Sender: FDA-Public Use
  Company Number: US-ASTRAZENECA-2007UW28988

PATIENT
  Age: 19075 Day
  Sex: Female
  Weight: 88.5 kg

DRUGS (28)
  1. SEROQUEL [Suspect]
     Indication: NERVOUS SYSTEM DISORDER
     Dosage: 25-600 MG
     Route: 048
     Dates: start: 20020313
  2. SEROQUEL [Suspect]
     Indication: SLEEP DISORDER
     Dosage: 25-600 MG
     Route: 048
     Dates: start: 20020313
  3. SEROQUEL [Suspect]
     Indication: ANXIETY
     Dosage: 25-600 MG
     Route: 048
     Dates: start: 20020313
  4. SEROQUEL [Suspect]
     Indication: PSYCHOTIC DISORDER
     Dosage: 25-600 MG
     Route: 048
     Dates: start: 20020313
  5. SEROQUEL [Suspect]
     Dosage: 25MG, 100MG, 200MG, 300MG
     Route: 048
     Dates: start: 20020301, end: 20040901
  6. SEROQUEL [Suspect]
     Dosage: 25MG, 100MG, 200MG, 300MG
     Route: 048
     Dates: start: 20020301, end: 20040901
  7. SEROQUEL [Suspect]
     Dosage: 25MG, 100MG, 200MG, 300MG
     Route: 048
     Dates: start: 20020301, end: 20040901
  8. SEROQUEL [Suspect]
     Dosage: 25MG, 100MG, 200MG, 300MG
     Route: 048
     Dates: start: 20020301, end: 20040901
  9. HYDROCODONE BITARTRATE AND ACETAMINOPHEN [Concomitant]
     Indication: PAIN
     Dosage: 7.5/750 MG
  10. EFFEXOR XR [Concomitant]
     Indication: DEPRESSION
     Dosage: 75-150 MG
     Dates: start: 20020313, end: 20030917
  11. PLENDIL [Concomitant]
  12. PAXIL CR [Concomitant]
     Dates: start: 20020501, end: 20021101
  13. PAXIL CR [Concomitant]
     Dosage: 25 MG AT NIGHT, 37.5 MG AT NIGHT
     Dates: end: 20021211
  14. WELLBUTRIN SR [Concomitant]
     Dates: start: 20020101
  15. WELLBUTRIN SR [Concomitant]
     Dosage: 150 MG EVERY MORNING, 200 MG EVERY MORNING, 200 MG TWO TIMES A DAY
  16. SILVADENE [Concomitant]
     Indication: THERMAL BURN
  17. LEXAPRO [Concomitant]
     Indication: AFFECTIVE DISORDER
     Dates: start: 20030101
  18. LEXAPRO [Concomitant]
     Dosage: 10 MG EVERY MORNING, 20 MG DAILY, 20 MG TWO TABLET EVERY MORNING, 20 MG TWO TABLET AT NIGHT
     Dates: end: 20050914
  19. AMBIEN [Concomitant]
     Dosage: 10 MG 1 TO 2 AT NIGHT, 10 MG TWO TIMES A DAY
  20. BETAMETHASONE [Concomitant]
  21. NEURONTIN [Concomitant]
     Indication: DISCOMFORT
     Dates: end: 20040428
  22. NEURONTIN [Concomitant]
     Indication: MOOD ALTERED
     Dates: end: 20040428
  23. DESPO-MEDROL [Concomitant]
     Dosage: 40 MG/ML
  24. KENALOG-ACETONIDE [Concomitant]
     Dosage: 40 MG-80 MG
     Route: 030
  25. DARVOCET [Concomitant]
  26. VERSED [Concomitant]
     Dosage: STRENGTH - 5 MG/ML
  27. CLARINEX [Concomitant]
  28. NAFTIN [Concomitant]

REACTIONS (4)
  - BACK INJURY [None]
  - BACK PAIN [None]
  - DIABETES MELLITUS [None]
  - WEIGHT INCREASED [None]
